FAERS Safety Report 8004424-5 (Version None)
Quarter: 2011Q4

REPORT INFORMATION
  Report Type: 
  Country: None (occurrence: None)
  Receive Date: 20111221
  Receipt Date: 20111221
  Transmission Date: 20120403
  Serious: Yes (Hospitalization)
  Sender: FDA-Public Use
  Company Number: None

PATIENT
  Sex: Male
  Weight: 81.6475 kg

DRUGS (1)
  1. STAHIST MAGNA PHARMACEUTICALS [Suspect]
     Indication: RHINITIS ALLERGIC
     Dosage: 1/2 TABLET A DAY ORAL
     Route: 048
     Dates: start: 20111001, end: 20111201

REACTIONS (1)
  - PLEURAL EFFUSION [None]
